FAERS Safety Report 5004628-X (Version None)
Quarter: 2006Q2

REPORT INFORMATION
  Report Type: 
  Country: None (occurrence: None)
  Receive Date: 20060512
  Receipt Date: 20060505
  Transmission Date: 20061013
  Serious: Yes (Hospitalization)
  Sender: FDA-Public Use
  Company Number: 2006-03-0894

PATIENT
  Age: 5 Day
  Sex: Female
  Weight: 3 kg

DRUGS (4)
  1. AERIUS (DESLORATADINE) TABLET [Suspect]
     Indication: ASTHMA
     Dosage: ORAL
     Route: 048
  2. FORADIL [Suspect]
     Dosage: INHALATION
     Route: 055
  3. UVESTEROL [Concomitant]
  4. VITAMIN K [Concomitant]

REACTIONS (9)
  - DRUG EXPOSURE DURING PREGNANCY [None]
  - DRUG EXPOSURE VIA BREAST MILK [None]
  - FEEDING DISORDER NEONATAL [None]
  - HYPOTONIA NEONATAL [None]
  - NASAL CONGESTION [None]
  - NEONATAL DISORDER [None]
  - REGURGITATION OF FOOD [None]
  - RHINOLARYNGITIS [None]
  - SOMNOLENCE NEONATAL [None]
